FAERS Safety Report 9974591 (Version 1)
Quarter: 2014Q1

REPORT INFORMATION
  Report Type: Report from Study
  Country: US (occurrence: US)
  Receive Date: 20140306
  Receipt Date: 20140306
  Transmission Date: 20141002
  Serious: No
  Sender: FDA-Public Use
  Company Number: US-ABBVIE-13P-163-1157338-00

PATIENT
  Age: 40 Year
  Sex: Female

DRUGS (6)
  1. HUMIRA [Suspect]
     Indication: CROHN^S DISEASE
     Dates: start: 20130918, end: 20130918
  2. HUMIRA [Suspect]
     Dates: start: 20131002
  3. ZOLOFT [Concomitant]
     Indication: ANXIETY
  4. ENTOCORT [Concomitant]
     Indication: CROHN^S DISEASE
     Dosage: 3 PILLS DAILY
  5. B12 [Concomitant]
     Indication: VITAMIN SUPPLEMENTATION
  6. ZYRTEC [Concomitant]
     Indication: SEASONAL ALLERGY

REACTIONS (1)
  - Fatigue [Recovered/Resolved]
